FAERS Safety Report 9330727 (Version 1)
Quarter: 2013Q2

REPORT INFORMATION
  Report Type: Spontaneous
  Country: US (occurrence: None)
  Receive Date: 20130604
  Receipt Date: 20130604
  Transmission Date: 20140414
  Serious: Yes (Life-Threatening, Hospitalization)
  Sender: FDA-Public Use
  Company Number: None

PATIENT
  Age: 48 Year
  Sex: Female

DRUGS (1)
  1. DOBUTAMINE [Suspect]
     Dates: start: 20130602, end: 20130603

REACTIONS (2)
  - Product quality issue [None]
  - Haemodynamic instability [None]
